FAERS Safety Report 20932061 (Version 1)
Quarter: 2022Q2

REPORT INFORMATION
  Report Type: Spontaneous
  Country: US (occurrence: US)
  Receive Date: 20220608
  Receipt Date: 20220608
  Transmission Date: 20220721
  Serious: Yes (Hospitalization)
  Sender: FDA-Public Use
  Company Number: 304684

PATIENT
  Sex: Male
  Weight: 80.272 kg

DRUGS (1)
  1. TAVALISSE [Suspect]
     Active Substance: FOSTAMATINIB
     Indication: Immune thrombocytopenia
     Dosage: 100 MG, BID
     Route: 048

REACTIONS (9)
  - COVID-19 [Recovered/Resolved]
  - Cough [Recovered/Resolved]
  - Asphyxia [Recovered/Resolved]
  - Haemoglobin decreased [Unknown]
  - Malaise [Unknown]
  - Platelet count decreased [Unknown]
  - Depressed mood [Unknown]
  - Sleep disorder [Unknown]
  - Drug effect less than expected [Unknown]

NARRATIVE: CASE EVENT DATE: 20210101
